FAERS Safety Report 7586596-X (Version None)
Quarter: 2011Q2

REPORT INFORMATION
  Report Type: 
  Country: None (occurrence: None)
  Receive Date: 20110603
  Receipt Date: 20110218
  Transmission Date: 20111010
  Serious: Yes (Hospitalization)
  Sender: FDA-Public Use
  Company Number: 2011SP008068

PATIENT
  Age: 55 Year
  Sex: Female

DRUGS (6)
  1. SAPHRIS [Suspect]
     Indication: SCHIZOPHRENIA
     Dosage: 5 MG;BID;PO
     Route: 048
     Dates: start: 20101201, end: 20110213
  2. LORATADINE [Concomitant]
  3. LEVEMIR [Concomitant]
  4. LEXAPRO [Concomitant]
  5. CLONAZEPAM [Concomitant]
  6. CRESTOR [Concomitant]

REACTIONS (3)
  - TARDIVE DYSKINESIA [None]
  - INCORRECT ROUTE OF DRUG ADMINISTRATION [None]
  - WITHDRAWAL SYNDROME [None]
